FAERS Safety Report 6758886-1 (Version None)
Quarter: 2010Q2

REPORT INFORMATION
  Report Type: 
  Country: None (occurrence: None)
  Receive Date: 20100607
  Receipt Date: 20100525
  Transmission Date: 20101027
  Serious: Yes (Other)
  Sender: FDA-Public Use
  Company Number: PHHY2010US34281

PATIENT
  Sex: Female

DRUGS (1)
  1. RECLAST [Suspect]

REACTIONS (5)
  - BURNING SENSATION [None]
  - ENDODONTIC PROCEDURE [None]
  - JAW OPERATION [None]
  - NERVE INJURY [None]
  - TOOTH DISORDER [None]
